FAERS Safety Report 9806070 (Version 3)
Quarter: 2015Q2

REPORT INFORMATION
  Report Type: Report from Study
  Country: US (occurrence: US)
  Receive Date: 20140109
  Receipt Date: 20150626
  Transmission Date: 20150821
  Serious: Yes (Hospitalization, Other)
  Sender: FDA-Public Use
  Company Number: US-ALEXION PHARMACEUTICALS INC.-A201304756

PATIENT

DRUGS (2)
  1. CHEMOTHERAPEUTICS [Suspect]
     Active Substance: UNSPECIFIED INGREDIENT
     Indication: PRODUCT USED FOR UNKNOWN INDICATION
     Route: 065
  2. SOLIRIS [Suspect]
     Active Substance: ECULIZUMAB
     Indication: PAROXYSMAL NOCTURNAL HAEMOGLOBINURIA
     Dosage: UNK
     Route: 042

REACTIONS (8)
  - White blood cell count decreased [Unknown]
  - Fatigue [Unknown]
  - Breast cancer [Unknown]
  - Colon cancer metastatic [Unknown]
  - Red blood cell count decreased [Unknown]
  - Cervix carcinoma [Unknown]
  - Platelet count decreased [Unknown]
  - Infection [Unknown]

NARRATIVE: CASE EVENT DATE: 201503
